FAERS Safety Report 5491564-8 (Version None)
Quarter: 2007Q4

REPORT INFORMATION
  Report Type: 
  Country: None (occurrence: None)
  Receive Date: 20071018
  Receipt Date: 20071018
  Transmission Date: 20080405
  Serious: Yes (Hospitalization)
  Sender: FDA-Public Use
  Company Number: None

PATIENT
  Age: 41 Year
  Sex: Male

DRUGS (5)
  1. ACETAMINOPHEN [Suspect]
     Indication: SUICIDE ATTEMPT
     Dosage: 10-15 GM PO X 1
     Route: 048
     Dates: start: 20070824
  2. IBUPROFEN [Concomitant]
  3. FLEXERIL [Concomitant]
  4. PROZAC [Concomitant]
  5. SEROQUEL [Concomitant]

REACTIONS (1)
  - DRUG LEVEL INCREASED [None]
